FAERS Safety Report 7954767-6 (Version None)
Quarter: 2011Q4

REPORT INFORMATION
  Report Type: 
  Country: None (occurrence: None)
  Receive Date: 20111202
  Receipt Date: 20111122
  Transmission Date: 20120403
  Serious: No
  Sender: FDA-Public Use
  Company Number: US-B.I. PHARMACEUTICALS,INC./RIDGEFIELD-2011-BP-18533BP

PATIENT
  Age: 78 Year
  Sex: Female

DRUGS (6)
  1. SIMVASTATIN [Concomitant]
  2. COREG [Concomitant]
  3. ISORDIL [Concomitant]
  4. PRADAXA [Suspect]
     Indication: ATRIAL FIBRILLATION
     Dosage: 300 MG
  5. GLUCOVANCE [Concomitant]
  6. ASPIRIN [Concomitant]

REACTIONS (2)
  - PETECHIAE [None]
  - HYPONATRAEMIA [None]
